FAERS Safety Report 5875706-8 (Version None)
Quarter: 2008Q3

REPORT INFORMATION
  Report Type: 
  Country: None (occurrence: None)
  Receive Date: 20080905
  Receipt Date: 20080825
  Transmission Date: 20090109
  Serious: Yes (Hospitalization, Other)
  Sender: FDA-Public Use
  Company Number: WAES 0807USA04503

PATIENT
  Age: 75 Year
  Sex: Male
  Weight: 102.5129 kg

DRUGS (12)
  1. CAP VORINOSTAT UNK [Suspect]
     Indication: ACUTE MYELOID LEUKAEMIA
     Dosage: 400 MG/DAILY/PO
     Route: 048
     Dates: start: 20080322, end: 20080402
  2. CAP VORINOSTAT UNK [Suspect]
     Indication: ACUTE MYELOID LEUKAEMIA
     Dosage: 400 MG/DAILY/PO
     Route: 048
     Dates: start: 20080426, end: 20080614
  3. CAP VORINOSTAT UNK [Suspect]
     Indication: ACUTE MYELOID LEUKAEMIA
     Dosage: 400 MG/DAILY/PO
     Route: 048
     Dates: start: 20080601, end: 20080614
  4. INJ DECITABINE UNK [Suspect]
     Indication: ACUTE MYELOID LEUKAEMIA
     Dosage: 45 MG/DAILY/IV
     Route: 042
     Dates: start: 20080317, end: 20080321
  5. INJ DECITABINE UNK [Suspect]
     Indication: ACUTE MYELOID LEUKAEMIA
     Dosage: 45 MG/DAILY/IV
     Route: 042
     Dates: start: 20080421, end: 20080425
  6. INJ DECITABINE UNK [Suspect]
     Indication: ACUTE MYELOID LEUKAEMIA
     Dosage: 45 MG/DAILY/IV
     Route: 042
     Dates: start: 20080527, end: 20080531
  7. TOPROL-XL [Concomitant]
  8. ACYCLOVIR [Concomitant]
  9. ALLOPURINOL [Concomitant]
  10. GLUCOSAMINE [Concomitant]
  11. LISINOPRIL [Concomitant]
  12. PREDNISONE TAB [Concomitant]

REACTIONS (8)
  - ACUTE PRERENAL FAILURE [None]
  - CELLULITIS [None]
  - CLOSTRIDIAL INFECTION [None]
  - DEHYDRATION [None]
  - GOUT [None]
  - HAEMOGLOBIN DECREASED [None]
  - RENAL FAILURE ACUTE [None]
  - ULCER [None]
